FAERS Safety Report 4426675-9 (Version None)
Quarter: 2004Q3

REPORT INFORMATION
  Report Type: 
  Country: None (occurrence: None)
  Receive Date: 20040811
  Receipt Date: 20040729
  Transmission Date: 20050211
  Serious: Yes (Other)
  Sender: FDA-Public Use
  Company Number: 2004051708

PATIENT
  Age: 54 Year
  Sex: Female

DRUGS (1)
  1. NEURONTIN [Suspect]
     Indication: INTERVERTEBRAL DISC DISPLACEMENT
     Dosage: 300 MG (300 MG, 1 IN 1 D), ORAL
     Route: 048
     Dates: start: 20021201, end: 20040611

REACTIONS (5)
  - DIFFICULTY IN WALKING [None]
  - GAIT DISTURBANCE [None]
  - NERVE COMPRESSION [None]
  - PAIN IN EXTREMITY [None]
  - WEIGHT DECREASED [None]
